FAERS Safety Report 16346055 (Version 4)
Quarter: 2019Q4

REPORT INFORMATION
  Report Type: Report from Study
  Country: US (occurrence: US)
  Receive Date: 20190523
  Receipt Date: 20191217
  Transmission Date: 20200122
  Serious: Yes (Death, Hospitalization, Other)
  Sender: FDA-Public Use
  Company Number: US-BRISTOL-MYERS SQUIBB COMPANY-BMS-2019-046733

PATIENT
  Age: 62 Year
  Sex: Female

DRUGS (1)
  1. ABATACEPT [Suspect]
     Active Substance: ABATACEPT
     Indication: PRODUCT USED FOR UNKNOWN INDICATION
     Dosage: 125 MILLIGRAM, QWK
     Route: 058

REACTIONS (7)
  - Death [Fatal]
  - Fall [Unknown]
  - Musculoskeletal pain [Unknown]
  - Hip fracture [Unknown]
  - Pain in extremity [Unknown]
  - Lower limb fracture [Unknown]
  - Back pain [Unknown]

NARRATIVE: CASE EVENT DATE: 20190509
